FAERS Safety Report 7237887-3 (Version None)
Quarter: 2011Q1

REPORT INFORMATION
  Report Type: 
  Country: None (occurrence: None)
  Receive Date: 20110119
  Receipt Date: 20110119
  Transmission Date: 20110831
  Serious: No
  Sender: FDA-Public Use
  Company Number: None

PATIENT
  Age: 64 Year
  Sex: Female

DRUGS (2)
  1. CIPROFLOXACIN [Suspect]
     Dates: start: 20091209, end: 20091212
  2. TRIMETHOPRIM + SULFAMETHOXAZOLE [Suspect]
     Dates: start: 20091216, end: 20091221

REACTIONS (2)
  - LIVER INJURY [None]
  - BILE DUCT CANCER [None]
